FAERS Safety Report 5763400-3 (Version None)
Quarter: 2008Q2

REPORT INFORMATION
  Report Type: 
  Country: None (occurrence: None)
  Receive Date: 20080609
  Receipt Date: 20080530
  Transmission Date: 20081010
  Serious: Yes (Hospitalization, Other)
  Sender: FDA-Public Use
  Company Number: NL-ABBOTT-08P-114-0454230-00

PATIENT
  Sex: Female

DRUGS (24)
  1. ZEMPLAR [Suspect]
     Indication: HYPERPARATHYROIDISM SECONDARY
     Dosage: 2.5 MCG WEEKLY
     Route: 042
     Dates: start: 20060509, end: 20080429
  2. CINACALCET [Concomitant]
     Indication: HYPERPARATHYROIDISM SECONDARY
     Dosage: COATED TABLET
     Route: 048
     Dates: start: 20070731
  3. NADROPARIN CALCIUM [Concomitant]
     Indication: ANTICOAGULANT THERAPY
     Dates: start: 20070220
  4. NATRIUMCITRATE HD-KATHSLOT [Concomitant]
     Indication: ANTICOAGULANT THERAPY
     Dosage: 2.3 ML ATERIAL OR INTRAVENOUSLY; COMPLENTARY VOLUME 2.3 MLCOMPLENTARY VOLUME 2.3 ML
     Dates: start: 20070220
  5. NATRIUMCITRATE HD-KATHSLOT [Concomitant]
     Indication: ANTIBIOTIC PROPHYLAXIS
  6. LANETTE I CREME [Concomitant]
     Indication: DRUG USE FOR UNKNOWN INDICATION
     Dates: start: 20080408
  7. COLECALCIFEROL [Concomitant]
     Indication: DRUG USE FOR UNKNOWN INDICATION
     Dosage: 2800 IE WEEKLY
     Dates: start: 20080318
  8. LISINOPRIL [Concomitant]
     Indication: DRUG USE FOR UNKNOWN INDICATION
     Dates: start: 20071122
  9. NATRIUM BICARBONATE [Concomitant]
     Indication: DRUG USE FOR UNKNOWN INDICATION
     Dates: start: 20070828
  10. LEVOTHYROXINE SODIUM [Concomitant]
     Indication: DRUG USE FOR UNKNOWN INDICATION
     Dosage: DUOTAB
     Dates: start: 20070529
  11. SELEKEEN ZOC [Concomitant]
     Indication: CARDIOVASCULAR DISORDER
     Dosage: HALF OF 50 MG TABLET ONCE DAILY
     Dates: start: 20070417
  12. LANTHANUM CARBONATE [Concomitant]
     Indication: MINERAL SUPPLEMENTATION
     Dates: start: 20070313
  13. SEVELAMER [Concomitant]
     Indication: MINERAL SUPPLEMENTATION
     Dosage: COATED TABLET; 1600 MG ONCE DAILY, 3200 MG 2 TIMES DAILY
     Route: 048
     Dates: start: 20061226
  14. NULYTELY [Concomitant]
     Indication: LAXATIVE SUPPORTIVE CARE
     Route: 048
     Dates: start: 20061010
  15. PREDNISOLONE [Concomitant]
     Indication: IMMUNOSUPPRESSANT DRUG THERAPY
     Dates: start: 20060607
  16. SIMMTROMITIS [Concomitant]
     Indication: DRUG USE FOR UNKNOWN INDICATION
     Route: 048
     Dates: start: 20031004
  17. OMEPRAZOLE [Concomitant]
     Indication: DRUG USE FOR UNKNOWN INDICATION
     Dates: start: 20031004
  18. MULTIVITAMINE PROHAEMO ISALA [Concomitant]
     Indication: VITAMIN SUPPLEMENTATION
     Route: 048
     Dates: start: 20031010
  19. ARANESP [Concomitant]
     Indication: MINERAL SUPPLEMENTATION
     Dosage: 20MCG/0.5ML SU INJECTION FLUID; ONCE WEEKLY
     Route: 050
     Dates: start: 20080506
  20. ARANESP [Concomitant]
     Dosage: 50MCG/0.5ML SU INJECTION FLUID; ONCE WEEKLY
     Route: 048
     Dates: start: 20080506
  21. NATRIMCHLOR 9 MG/ML INJECTION FLUID [Concomitant]
     Indication: DRUG USE FOR UNKNOWN INDICATION
     Route: 048
     Dates: start: 20080214
  22. NATRIMCHLOR 9 MG/ML INJECTION FLUID [Concomitant]
     Route: 048
     Dates: start: 20080217
  23. LEVOCARNITINE [Concomitant]
     Indication: VITAMIN SUPPLEMENTATION
     Dosage: 200 MG/ML INJECTION FLUID 3 TIMES WEEKLY
     Dates: start: 20061024
  24. MUPIROCIN [Concomitant]
     Indication: BACTERIAL INFECTION
     Dosage: 20MG/G NOSE CREAM; ONCE DAILY
     Dates: start: 20060824

REACTIONS (19)
  - ACTIVITIES OF DAILY LIVING IMPAIRED [None]
  - AGITATION [None]
  - ANHEDONIA [None]
  - APATHY [None]
  - ARTHRITIS [None]
  - DEPRESSION [None]
  - ERYTHEMA [None]
  - FALL [None]
  - FEELING HOT [None]
  - GASTROINTESTINAL ANGIODYSPLASIA [None]
  - JOINT SWELLING [None]
  - NEOPLASM [None]
  - PAIN [None]
  - PELVIC FRACTURE [None]
  - POLYP [None]
  - PSYCHOTIC DISORDER [None]
  - PSYCHOTIC DISORDER DUE TO A GENERAL MEDICAL CONDITION [None]
  - SPEECH DISORDER [None]
  - URINARY TRACT INFECTION BACTERIAL [None]
